FAERS Safety Report 7768488-6 (Version None)
Quarter: 2011Q3

REPORT INFORMATION
  Report Type: 
  Country: None (occurrence: None)
  Receive Date: 20110922
  Receipt Date: 20110210
  Transmission Date: 20111222
  Serious: No
  Sender: FDA-Public Use
  Company Number: US-ASTRAZENECA-2011SE07937

PATIENT
  Age: 49 Year
  Sex: Male

DRUGS (5)
  1. OTC ALLERGY MEDICATION [Concomitant]
  2. LISINOPRIL [Concomitant]
  3. SEROQUEL [Suspect]
     Route: 048
     Dates: end: 20110204
  4. SERTRALINE HYDROCHLORIDE [Concomitant]
  5. ADDERALL 5 [Concomitant]

REACTIONS (4)
  - HICCUPS [None]
  - INSOMNIA [None]
  - DRUG DOSE OMISSION [None]
  - MALAISE [None]
